FAERS Safety Report 11966444 (Version 8)
Quarter: 2017Q1

REPORT INFORMATION
  Report Type: Other
  Country: DE (occurrence: DE)
  Receive Date: 20160127
  Receipt Date: 20170228
  Transmission Date: 20170428
  Serious: Yes (Death, Life-Threatening, Other)
  Sender: FDA-Public Use
  Company Number: DE-TAKEDA-2016TUS001253

PATIENT
  Age: 30 Year
  Sex: Female

DRUGS (3)
  1. ENTYVIO [Suspect]
     Active Substance: VEDOLIZUMAB
     Indication: COLITIS ULCERATIVE
     Dosage: 300 MG, UNK
     Route: 042
     Dates: start: 20151008, end: 20151119
  2. PANTOPRAZOLE [Concomitant]
     Active Substance: PANTOPRAZOLE SODIUM
     Indication: ABDOMINAL PAIN UPPER
     Dosage: 40 MG, UNK
  3. METAMIZOLE [Concomitant]
     Active Substance: METAMIZOLE
     Indication: HEADACHE
     Dosage: 20 GTT, UNK

REACTIONS (11)
  - Pulmonary embolism [Not Recovered/Not Resolved]
  - Lactic acidosis [Not Recovered/Not Resolved]
  - Hepatitis E [Fatal]
  - Hepatic failure [Fatal]
  - Respiratory failure [Not Recovered/Not Resolved]
  - Abdominal pain [Unknown]
  - Multiple organ dysfunction syndrome [Fatal]
  - Pneumothorax [Not Recovered/Not Resolved]
  - Vomiting [Unknown]
  - Systemic inflammatory response syndrome [Not Recovered/Not Resolved]
  - Pneumonia [Not Recovered/Not Resolved]

NARRATIVE: CASE EVENT DATE: 201512
